FAERS Safety Report 6027939-8 (Version None)
Quarter: 2009Q1

REPORT INFORMATION
  Report Type: 
  Country: None (occurrence: None)
  Receive Date: 20090105
  Receipt Date: 20081229
  Transmission Date: 20090719
  Serious: Yes (Other)
  Sender: FDA-Public Use
  Company Number: PHHY2008BR33395

PATIENT
  Sex: Female

DRUGS (1)
  1. METHERGINE [Suspect]
     Dosage: 0.125 MG PER MONTH
     Route: 048

REACTIONS (3)
  - BREAST ENLARGEMENT [None]
  - BREAST PAIN [None]
  - DIZZINESS [None]
